FAERS Safety Report 25647172 (Version 2)
Quarter: 2025Q3

REPORT INFORMATION
  Report Type: Spontaneous
  Country: US (occurrence: US)
  Receive Date: 20250806
  Receipt Date: 20250826
  Transmission Date: 20251020
  Serious: Yes (Life-Threatening, Hospitalization)
  Sender: TEVA
  Company Number: US-TEVA-VS-3358480

PATIENT
  Age: 38 Year
  Sex: Male

DRUGS (3)
  1. BLEOMYCIN [Suspect]
     Active Substance: BLEOMYCIN SULFATE
     Indication: Germ cell neoplasm
     Route: 065
  2. ETOPOSIDE [Concomitant]
     Active Substance: ETOPOSIDE
     Indication: Germ cell neoplasm
     Route: 065
  3. PACLITAXEL [Concomitant]
     Active Substance: PACLITAXEL
     Indication: Germ cell neoplasm
     Route: 065

REACTIONS (4)
  - Pulmonary toxicity [Recovering/Resolving]
  - Right ventricular dysfunction [Recovering/Resolving]
  - Respiratory failure [Recovering/Resolving]
  - Pulmonary fibrosis [Recovering/Resolving]
